FAERS Safety Report 8456965 (Version 12)
Quarter: 2014Q2

REPORT INFORMATION
  Report Type: Report from Study
  Country: BR (occurrence: BR)
  Receive Date: 20120313
  Receipt Date: 20140513
  Transmission Date: 20141212
  Serious: Yes (Hospitalization, Disabling, Other)
  Sender: FDA-Public Use
  Company Number: BR-ROCHE-720062

PATIENT
  Age: 64 Year
  Sex: Female
  Weight: 75 kg

DRUGS (42)
  1. MABTHERA [Suspect]
     Indication: RHEUMATOID ARTHRITIS
     Route: 042
     Dates: start: 20081117, end: 20081117
  2. MABTHERA [Suspect]
     Route: 042
     Dates: start: 20081204, end: 20081204
  3. MABTHERA [Suspect]
     Dosage: ROUTE: ENDOVENOUS; DOSE: 100MG/10ML, FREQUENCY: 1000 MG, SECOND INFUSION WAS GIVEN ON 01 OCT 2012.
     Route: 042
     Dates: start: 20100601, end: 20110817
  4. MABTHERA [Suspect]
     Dosage: LATEST INFUSION WAS GIVEN ON 14/AUG/2013
     Route: 042
  5. AZITHROMYCIN [Suspect]
     Indication: NASOPHARYNGITIS
     Dosage: OTHER INDICATION: ASTHMA
     Route: 065
  6. DICLOFENAC [Concomitant]
     Route: 065
  7. CYCLOBENZAPRINE [Concomitant]
     Route: 065
  8. LYRICA [Concomitant]
     Route: 065
  9. TRAMAL [Concomitant]
     Indication: PAIN
     Route: 065
  10. PENICILLAMINE [Concomitant]
     Indication: RHEUMATOID ARTHRITIS
     Route: 065
  11. OMEPRAZOLE [Concomitant]
     Indication: GASTRIC DISORDER
     Route: 065
  12. OMEPRAZOLE [Concomitant]
     Route: 065
  13. TYLENOL [Concomitant]
     Indication: PAIN
     Route: 065
  14. TYLENOL [Concomitant]
     Route: 065
  15. CELEBRA [Concomitant]
     Indication: PAIN
     Route: 065
  16. LOSARTAN [Concomitant]
     Indication: HYPERTENSION
     Dosage: DRUG: LOSARTANA
     Route: 065
  17. DIURISA [Concomitant]
     Indication: POLYURIA
     Route: 065
  18. PENTALAC [Concomitant]
     Indication: GASTROINTESTINAL DISORDER
     Dosage: 3 OR 4 TIMES/DAY, OTHER INDICATION STOMACH CRISIS
     Route: 065
  19. PENTALAC [Concomitant]
     Indication: HEPATIC ENCEPHALOPATHY
  20. NEOMYCIN [Concomitant]
     Indication: GASTROINTESTINAL DISORDER
     Route: 065
  21. DOMPERIDONE [Concomitant]
     Dosage: WHEN NECESSARY
     Route: 065
  22. AMLODIPINE [Concomitant]
     Route: 065
  23. ACECLOFENAC [Concomitant]
     Route: 065
  24. LIPLESS [Concomitant]
     Route: 065
  25. DOMPERIDONE [Concomitant]
     Dosage: INDICATION: STOMACH CRISIS
     Route: 065
  26. CORTISONE [Concomitant]
     Route: 065
  27. BAMIFIX [Concomitant]
  28. AVAMYS [Concomitant]
  29. LOSARTAN [Concomitant]
     Route: 065
  30. DIUPRESS [Concomitant]
     Route: 065
  31. ACETAMINOPHEN [Concomitant]
     Indication: PREMEDICATION
  32. PREGABALIN [Concomitant]
  33. DIUREX (BRAZIL) [Concomitant]
     Route: 065
  34. HIGROTON [Concomitant]
  35. LACTULONA [Concomitant]
  36. PREDNISONE [Concomitant]
     Indication: PAIN
     Route: 065
  37. PREDNISONE [Concomitant]
     Route: 065
  38. NEOMYCIN [Concomitant]
  39. DIUPRESS [Concomitant]
  40. LOSARTAN [Concomitant]
  41. OMEPRAZOLE [Concomitant]
  42. NEXIUM [Concomitant]
     Indication: GASTRITIS

REACTIONS (65)
  - Knee arthroplasty [Unknown]
  - Fall [Unknown]
  - Spinal fracture [Unknown]
  - Limb injury [Recovering/Resolving]
  - Arthropathy [Unknown]
  - Bacterial infection [Unknown]
  - Encephalopathy [Unknown]
  - Arthropathy [Recovered/Resolved]
  - Back disorder [Not Recovered/Not Resolved]
  - Varicose vein [Recovering/Resolving]
  - Spinal disorder [Recovered/Resolved]
  - Hepatitis C [Not Recovered/Not Resolved]
  - Body height decreased [Not Recovered/Not Resolved]
  - Hepatic encephalopathy [Not Recovered/Not Resolved]
  - Swelling [Recovered/Resolved]
  - Nasopharyngitis [Recovered/Resolved]
  - Asthma [Recovered/Resolved]
  - Erythema [Not Recovered/Not Resolved]
  - Blood cholesterol increased [Recovered/Resolved]
  - Dizziness [Recovered/Resolved]
  - Nausea [Recovered/Resolved]
  - Hypotension [Recovered/Resolved]
  - Headache [Recovered/Resolved]
  - Chills [Recovered/Resolved]
  - Palpitations [Unknown]
  - Hyperaesthesia [Unknown]
  - Mass [Not Recovered/Not Resolved]
  - Constipation [Not Recovered/Not Resolved]
  - Chronic gastritis [Not Recovered/Not Resolved]
  - Hypertension [Not Recovered/Not Resolved]
  - Memory impairment [Not Recovered/Not Resolved]
  - Bronchitis [Not Recovered/Not Resolved]
  - Muscle rigidity [Not Recovered/Not Resolved]
  - Back pain [Unknown]
  - Arthralgia [Recovered/Resolved]
  - Anaemia [Recovering/Resolving]
  - Decreased immune responsiveness [Recovered/Resolved]
  - Musculoskeletal deformity [Not Recovered/Not Resolved]
  - Pain [Recovering/Resolving]
  - Nasopharyngitis [Not Recovered/Not Resolved]
  - Bronchitis [Recovering/Resolving]
  - Asthmatic crisis [Not Recovered/Not Resolved]
  - Protein total decreased [Not Recovered/Not Resolved]
  - Muscular weakness [Not Recovered/Not Resolved]
  - Osteoarthritis [Not Recovered/Not Resolved]
  - Insomnia [Not Recovered/Not Resolved]
  - Sciatica [Not Recovered/Not Resolved]
  - Exostosis [Not Recovered/Not Resolved]
  - Rheumatoid arthritis [Not Recovered/Not Resolved]
  - Peripheral swelling [Recovering/Resolving]
  - Pelvic pain [Unknown]
  - Rash [Not Recovered/Not Resolved]
  - Arthralgia [Not Recovered/Not Resolved]
  - Immunodeficiency [Not Recovered/Not Resolved]
  - Vascular rupture [Recovering/Resolving]
  - Pneumonia [Recovered/Resolved]
  - Blood pressure decreased [Not Recovered/Not Resolved]
  - Drug ineffective [Unknown]
  - Bronchitis [Recovered/Resolved]
  - Vitamin D decreased [Unknown]
  - Influenza [Recovered/Resolved]
  - Asthenia [Not Recovered/Not Resolved]
  - Urinary tract infection [Not Recovered/Not Resolved]
  - Coccydynia [Not Recovered/Not Resolved]
  - Bursitis [Not Recovered/Not Resolved]
